FAERS Safety Report 16430474 (Version 1)
Quarter: 2019Q2

REPORT INFORMATION
  Report Type: Spontaneous
  Country: US (occurrence: US)
  Receive Date: 20190614
  Receipt Date: 20190614
  Transmission Date: 20190711
  Serious: Yes (Hospitalization, Other)
  Sender: FDA-Public Use
  Company Number: US-AUROBINDO-AUR-APL-2019-032440

PATIENT

DRUGS (9)
  1. CLOZAPINE. [Suspect]
     Active Substance: CLOZAPINE
     Dosage: 100 MILLIGRAM, ONCE A DAY
     Route: 065
  2. PALIPERIDONE. [Concomitant]
     Active Substance: PALIPERIDONE
     Dosage: 9 MILLIGRAM, ONCE A DAY
     Route: 048
  3. CLOZAPINE. [Suspect]
     Active Substance: CLOZAPINE
     Dosage: 25 MILLIGRAM, ONCE A DAY
     Route: 065
  4. OLANZAPINE. [Concomitant]
     Active Substance: OLANZAPINE
     Indication: SCHIZOPHRENIA
     Dosage: UNK
     Route: 065
  5. CLOZAPINE. [Suspect]
     Active Substance: CLOZAPINE
     Indication: SCHIZOPHRENIA
     Dosage: 75 MILLIGRAM, ONCE A DAY
     Route: 065
  6. QUETIAPINE. [Concomitant]
     Active Substance: QUETIAPINE
     Indication: SCHIZOPHRENIA
     Dosage: UNK
     Route: 065
  7. PALIPERIDONE. [Concomitant]
     Active Substance: PALIPERIDONE
     Indication: SCHIZOPHRENIA
     Dosage: 12 MILLIGRAM, ONCE A DAY
     Route: 048
  8. OFLOXACIN. [Concomitant]
     Active Substance: OFLOXACIN
     Indication: OTITIS EXTERNA
     Dosage: UNK
     Route: 061
  9. ARIPIPRAZOLE. [Concomitant]
     Active Substance: ARIPIPRAZOLE
     Indication: SCHIZOPHRENIA
     Dosage: UNK
     Route: 065

REACTIONS (4)
  - Dysarthria [Recovered/Resolved]
  - Insomnia [Unknown]
  - Delirium [Recovered/Resolved]
  - Dry mouth [Unknown]
